FAERS Safety Report 24200320 (Version 3)
Quarter: 2024Q4

REPORT INFORMATION
  Report Type: Spontaneous
  Country: US (occurrence: US)
  Receive Date: 20240812
  Receipt Date: 20241029
  Transmission Date: 20250115
  Serious: No
  Sender: ASTELLAS
  Company Number: US-ASTELLAS-2024US013777

PATIENT
  Age: 93 Year
  Sex: Female

DRUGS (3)
  1. IZERVAY [Suspect]
     Active Substance: AVACINCAPTAD PEGOL SODIUM
     Indication: Age-related macular degeneration
     Dosage: 2 MG, OTHER (Q2 MONTH) IN RIGHT EYE
     Dates: start: 20240108, end: 20240108
  2. IZERVAY [Suspect]
     Active Substance: AVACINCAPTAD PEGOL SODIUM
     Indication: Retinal detachment
  3. CIMERLI [Suspect]
     Active Substance: RANIBIZUMAB-EQRN
     Indication: Product used for unknown indication
     Dosage: UNK UNK,(0.5 INJECTION) UNKNOWN FREQ.
     Route: 065
     Dates: start: 20240115

REACTIONS (2)
  - Eye infection [Recovered/Resolved]
  - Off label use [Unknown]

NARRATIVE: CASE EVENT DATE: 20240108
